FAERS Safety Report 4754063-4 (Version None)
Quarter: 2005Q3

REPORT INFORMATION
  Report Type: 
  Country: None (occurrence: None)
  Receive Date: 20050826
  Receipt Date: 20050817
  Transmission Date: 20060218
  Serious: Yes (Other)
  Sender: FDA-Public Use
  Company Number: 163-20785-05080017

PATIENT
  Age: 45 Year
  Sex: Female
  Weight: 102.5129 kg

DRUGS (4)
  1. THALOMID [Suspect]
     Indication: MULTIPLE MYELOMA
     Dosage: 150 MG, DAILY, ORAL
     Route: 048
     Dates: start: 20050317
  2. THALOMID [Suspect]
     Indication: MULTIPLE MYELOMA
     Dosage: 150 MG, DAILY, ORAL
     Route: 048
     Dates: start: 20050801
  3. LABETALOL HCL [Concomitant]
  4. TYLENOL ES (PARACETAMOL) [Concomitant]

REACTIONS (6)
  - CELLULITIS [None]
  - ERYTHEMA [None]
  - HAEMOGLOBIN DECREASED [None]
  - OEDEMA PERIPHERAL [None]
  - PARAESTHESIA ORAL [None]
  - PREGNANCY TEST POSITIVE [None]
